FAERS Safety Report 7303840-4 (Version None)
Quarter: 2011Q1

REPORT INFORMATION
  Report Type: 
  Country: None (occurrence: None)
  Receive Date: 20110221
  Receipt Date: 20110215
  Transmission Date: 20110831
  Serious: Yes (Hospitalization)
  Sender: FDA-Public Use
  Company Number: A0891333A

PATIENT
  Sex: Female

DRUGS (4)
  1. ADVAIR DISKUS 100/50 [Suspect]
     Route: 055
  2. CONCURRENT MEDICATIONS [Concomitant]
  3. VENTOLIN HFA [Suspect]
     Route: 055
  4. LAMICTAL [Suspect]
     Route: 048

REACTIONS (1)
  - ADVERSE EVENT [None]
